FAERS Safety Report 25052271 (Version 2)
Quarter: 2025Q2

REPORT INFORMATION
  Report Type: Spontaneous
  Country: US (occurrence: US)
  Receive Date: 20250307
  Receipt Date: 20250403
  Transmission Date: 20250716
  Serious: No
  Sender: EISAI
  Company Number: US-Eisai-EC-2025-184460

PATIENT
  Age: 83 Year
  Sex: Male

DRUGS (1)
  1. LEQEMBI [Suspect]
     Active Substance: LECANEMAB-IRMB
     Indication: Dementia Alzheimer^s type
     Dates: end: 20250131

REACTIONS (1)
  - Amyloid related imaging abnormalities [Recovered/Resolved]

NARRATIVE: CASE EVENT DATE: 20250101
